FAERS Safety Report 6096122-2 (Version None)
Quarter: 2009Q1

REPORT INFORMATION
  Report Type: 
  Country: None (occurrence: None)
  Receive Date: 20090227
  Receipt Date: 20080909
  Transmission Date: 20090719
  Serious: No
  Sender: FDA-Public Use
  Company Number: A0746574A

PATIENT
  Age: 53 Year
  Sex: Female

DRUGS (4)
  1. LAMICTAL [Suspect]
     Indication: BIPOLAR DISORDER
     Dosage: 100MG PER DAY
     Route: 048
     Dates: end: 20080905
  2. TOPAMAX [Concomitant]
  3. WELLBUTRIN XL [Concomitant]
  4. ESTRATEST [Concomitant]

REACTIONS (5)
  - ADVERSE EVENT [None]
  - BLISTER [None]
  - DIZZINESS [None]
  - MALAISE [None]
  - VISION BLURRED [None]
